FAERS Safety Report 7446598-0 (Version None)
Quarter: 2011Q2

REPORT INFORMATION
  Report Type: 
  Country: None (occurrence: None)
  Receive Date: 20110429
  Receipt Date: 20110421
  Transmission Date: 20111010
  Serious: Yes (Hospitalization)
  Sender: FDA-Public Use
  Company Number: PHHY2011IT33766

PATIENT
  Sex: Female

DRUGS (2)
  1. ATENOLOL [Suspect]
     Indication: TACHYCARDIA
     Dosage: 25 MG, UNK
     Dates: start: 20101201, end: 20110305
  2. INTRAFER [Concomitant]
     Dosage: 50 MG/ML, UNK
     Route: 048
     Dates: start: 20110308, end: 20110308

REACTIONS (2)
  - EXTRASYSTOLES [None]
  - PALPITATIONS [None]
